FAERS Safety Report 10159493 (Version 1)
Quarter: 2014Q2

REPORT INFORMATION
  Report Type: Spontaneous
  Country: JP (occurrence: JP)
  Receive Date: 20140508
  Receipt Date: 20140508
  Transmission Date: 20141212
  Serious: Yes (Hospitalization)
  Sender: FDA-Public Use
  Company Number: JP-JNJFOC-20140501758

PATIENT
  Age: 84 Year
  Sex: Male

DRUGS (1)
  1. SIMPONI [Suspect]
     Indication: RHEUMATOID ARTHRITIS
     Route: 058
     Dates: start: 20120713, end: 20130111

REACTIONS (3)
  - Pulmonary alveolar haemorrhage [Recovered/Resolved]
  - Fall [Recovered/Resolved]
  - Interstitial lung disease [Recovered/Resolved]
